FAERS Safety Report 12057603 (Version 2)
Quarter: 2016Q1

REPORT INFORMATION
  Report Type: Spontaneous
  Country: TW (occurrence: TW)
  Receive Date: 20160209
  Receipt Date: 20160224
  Transmission Date: 20160526
  Serious: Yes (Hospitalization)
  Sender: FDA-Public Use
  Company Number: TW-ACTELION-A-CH2016-131058

PATIENT
  Age: 47 Year
  Sex: Male

DRUGS (4)
  1. LANOXIN [Concomitant]
     Active Substance: DIGOXIN
     Dosage: 0.25 MG, QD
  2. VENTAVIS [Suspect]
     Active Substance: ILOPROST
     Indication: PULMONARY ARTERIAL HYPERTENSION
     Dosage: UNK, QID
     Route: 055
     Dates: start: 20150309
  3. OPSUMIT [Suspect]
     Active Substance: MACITENTAN
     Indication: PULMONARY ARTERIAL HYPERTENSION
     Dosage: 10 MG, QD
     Route: 048
     Dates: start: 20150421
  4. NOGOUT [Concomitant]
     Indication: GOUT
     Dosage: 100 MG, QD

REACTIONS (6)
  - Gastroenteritis [Recovering/Resolving]
  - Vomiting [Recovering/Resolving]
  - Diarrhoea haemorrhagic [Recovering/Resolving]
  - Asthenia [Recovering/Resolving]
  - Haemorrhoids [Unknown]
  - Gastric ulcer [Unknown]

NARRATIVE: CASE EVENT DATE: 20160202
